FAERS Safety Report 6219167-8 (Version None)
Quarter: 2009Q2

REPORT INFORMATION
  Report Type: 
  Country: None (occurrence: None)
  Receive Date: 20090605
  Receipt Date: 20090605
  Transmission Date: 20091009
  Serious: Yes (Other)
  Sender: FDA-Public Use
  Company Number: None

PATIENT
  Age: 47 Year
  Sex: Female
  Weight: 83.0083 kg

DRUGS (1)
  1. GABAPENTIN [Suspect]
     Indication: NEUROPATHY PERIPHERAL
     Dosage: 300  3 TIMES DAILY PO
     Route: 048
     Dates: start: 20090401, end: 20090531

REACTIONS (2)
  - DRUG EFFECT DECREASED [None]
  - HYPOAESTHESIA [None]
